FAERS Safety Report 9516720 (Version 1)
Quarter: 2013Q1

REPORT INFORMATION
  Report Type: Spontaneous
  Country: US (occurrence: None)
  Receive Date: 20130305
  Receipt Date: 20130305
  Transmission Date: 20140127
  Serious: Yes (Other)
  Sender: FDA-Public Use
  Company Number: 163-21880-12120395

PATIENT
  Age: 75 Year
  Sex: Male

DRUGS (9)
  1. REVLIMID [Suspect]
     Indication: AMYLOIDOSIS
     Dosage: 2.5 MG, 28 IN 28 D, PO
     Dates: start: 20121119
  2. :AMLODIPINE BESYLATE(AMLODIPINE BESILATE)(UNKNOWN) [Concomitant]
  3. ASPIRIN(ACETYLSALICYLIC ACID)(UNKNOWN) [Concomitant]
  4. CALCITRIOL(CALCITRIOL)(UNKNOWN) [Concomitant]
  5. CRESTOR(ROSUVASTATIN)(UNKNOWN) [Concomitant]
  6. EPOGEN(EPOETIN ALFA)(UNKNOWN) [Concomitant]
  7. HUMALOG MIX(INSULIN LISPRO)(UNKNOWN) [Concomitant]
  8. IMODIUM AD(LOPERAMIDE HYDROCHLORIDE)(UNKNOWN) [Concomitant]
  9. IRON(IRON)(UNKNOWN) [Concomitant]

REACTIONS (3)
  - Diarrhoea [None]
  - Fatigue [None]
  - Asthenia [None]
